FAERS Safety Report 8033211-7 (Version None)
Quarter: 2011Q4

REPORT INFORMATION
  Report Type: 
  Country: None (occurrence: None)
  Receive Date: 20111202
  Receipt Date: 20110817
  Transmission Date: 20120403
  Serious: Yes (Other)
  Sender: FDA-Public Use
  Company Number: WAES 0807USA02772

PATIENT
  Age: 58 Year
  Sex: Female

DRUGS (2)
  1. FOSAMAX PLUS D [Suspect]
     Indication: OSTEOPOROSIS PROPHYLAXIS
     Dosage: 70 MG/WKY/PO
     Route: 048
     Dates: start: 20021212, end: 20060406
  2. FOSAMAX [Suspect]
     Indication: OSTEOPOROSIS PROPHYLAXIS
     Dosage: 70 MG/WKY/PO
     Route: 048
     Dates: start: 20020201, end: 20060406

REACTIONS (34)
  - BREAST PAIN [None]
  - CERVICAL CYST [None]
  - CYSTOCELE [None]
  - BLADDER DISORDER [None]
  - UTERINE PROLAPSE [None]
  - HYPERTENSION [None]
  - POLLAKIURIA [None]
  - RECTOCELE [None]
  - ABDOMINAL PAIN LOWER [None]
  - TOOTH DISORDER [None]
  - LOOSE TOOTH [None]
  - ABDOMINAL DISCOMFORT [None]
  - MICTURITION URGENCY [None]
  - VAGINAL DISCHARGE [None]
  - THYROID DISORDER [None]
  - OSTEONECROSIS [None]
  - NEPHROLITHIASIS [None]
  - CERVICAL DYSPLASIA [None]
  - UTERINE LEIOMYOMA [None]
  - URINARY RETENTION [None]
  - BACK PAIN [None]
  - HYPOTHYROIDISM [None]
  - ABDOMINAL DISTENSION [None]
  - GLUCOSE TOLERANCE IMPAIRED [None]
  - TOOTH INFECTION [None]
  - PELVIC PAIN [None]
  - SMEAR CERVIX ABNORMAL [None]
  - NEPHROCALCINOSIS [None]
  - VAGINAL HAEMORRHAGE [None]
  - BLOOD CHOLESTEROL INCREASED [None]
  - HAEMATURIA [None]
  - JAW DISORDER [None]
  - NECK PAIN [None]
  - VULVOVAGINAL DISCOMFORT [None]
